FAERS Safety Report 6639917-6 (Version None)
Quarter: 2010Q1

REPORT INFORMATION
  Report Type: 
  Country: None (occurrence: None)
  Receive Date: 20100318
  Receipt Date: 20100309
  Transmission Date: 20100710
  Serious: Yes (Hospitalization, Other)
  Sender: FDA-Public Use
  Company Number: AU-NOVOPROD-303433

PATIENT
  Age: 76 Year
  Sex: Female
  Weight: 85 kg

DRUGS (10)
  1. NOVORAPID PENFILL [Suspect]
     Indication: TYPE 2 DIABETES MELLITUS
     Dosage: 16 U MORNING, 30 U LUNCH, 20-24 U DINNER
     Route: 058
  2. LANTUS [Concomitant]
     Indication: TYPE 2 DIABETES MELLITUS
     Dosage: 144 U MORNING, 80 U EVENING
     Route: 058
     Dates: start: 20050101
  3. XELODA [Concomitant]
     Indication: GASTROINTESTINAL CARCINOMA
     Dosage: 3600 MG, QD FOR TWO WEEKS FOLLOWING INFUSION
     Route: 048
  4. PRAMIN                             /00041901/ [Concomitant]
     Indication: NAUSEA
     Route: 048
  5. DEXAMETHASONE [Concomitant]
     Indication: NAUSEA
     Route: 048
  6. ZOFRAN [Suspect]
     Indication: NAUSEA
     Route: 048
  7. MAGNESIUM [Concomitant]
     Route: 048
  8. POTASSIUM [Concomitant]
     Route: 048
  9. IRON [Concomitant]
     Route: 048
  10. FRUSEMIDE                          /00032601/ [Concomitant]
     Indication: DIURETIC THERAPY
     Route: 048

REACTIONS (2)
  - GASTROINTESTINAL CARCINOMA [None]
  - HYPOAESTHESIA [None]
